FAERS Safety Report 5331367-8 (Version None)
Quarter: 2007Q2

REPORT INFORMATION
  Report Type: 
  Country: None (occurrence: None)
  Receive Date: 20070522
  Receipt Date: 20070510
  Transmission Date: 20071010
  Serious: Yes (Hospitalization)
  Sender: FDA-Public Use
  Company Number: AU-SANOFI-SYNTHELABO-A01200704958

PATIENT
  Sex: Female
  Weight: 64 kg

DRUGS (8)
  1. COLOFAC [Concomitant]
     Indication: DRUG USE FOR UNKNOWN INDICATION
     Dosage: UNK
     Route: 065
  2. COVERSYL PLUS [Concomitant]
     Indication: DRUG USE FOR UNKNOWN INDICATION
     Dosage: UNK
     Route: 065
  3. CELEBREX [Concomitant]
     Indication: DRUG USE FOR UNKNOWN INDICATION
     Dosage: UNK
     Route: 065
  4. PANTOPRAZOLE SODIUM [Concomitant]
     Indication: DRUG USE FOR UNKNOWN INDICATION
     Dosage: UNK
     Route: 065
  5. DESERIL [Concomitant]
     Indication: DRUG USE FOR UNKNOWN INDICATION
     Dosage: UNK
     Route: 065
  6. EFFEXOR [Suspect]
     Indication: DEPRESSION
     Route: 048
  7. STILNOX [Suspect]
     Indication: SLEEP DISORDER
     Route: 048
     Dates: start: 20050101, end: 20070101
  8. INDERAL [Concomitant]
     Indication: DRUG USE FOR UNKNOWN INDICATION
     Dosage: UNK
     Route: 065

REACTIONS (5)
  - AMNESIA [None]
  - DIARRHOEA [None]
  - FALL [None]
  - HEAD INJURY [None]
  - SLEEP WALKING [None]
